FAERS Safety Report 5578626-1 (Version None)
Quarter: 2007Q4

REPORT INFORMATION
  Report Type: 
  Country: None (occurrence: None)
  Receive Date: 20071227
  Receipt Date: 20071227
  Transmission Date: 20080405
  Serious: Yes (Hospitalization)
  Sender: FDA-Public Use
  Company Number: None

PATIENT
  Age: 41 Year
  Sex: Female
  Weight: 62.9 kg

DRUGS (16)
  1. MORPHINE SULFATE [Suspect]
     Indication: PAIN
     Dosage: 5MG IV Q2 PRN IV
     Route: 042
     Dates: start: 20070721, end: 20070723
  2. PERCOCET-5 [Suspect]
     Indication: PAIN
     Dosage: 1 Q 4H PRN PO
     Route: 048
     Dates: start: 20070721, end: 20070723
  3. ATENOLOL [Concomitant]
  4. BUPROPION HCL [Concomitant]
  5. BUSPIRONE HCL [Concomitant]
  6. PLAVIX [Concomitant]
  7. DILTIAZEM [Concomitant]
  8. ENALAPRIL [Concomitant]
  9. FLUCONAZOLE [Concomitant]
  10. M.V.I. [Concomitant]
  11. CLOZAPINE [Concomitant]
  12. SEVELAMER [Concomitant]
  13. WARFARIN SODIUM [Concomitant]
  14. OXYCODONE AND ACETAMINOPHEN [Concomitant]
  15. MORPHINE [Concomitant]
  16. PROMETHAZINE [Concomitant]

REACTIONS (3)
  - CARDIAC ARREST [None]
  - SEDATION [None]
  - SELF-MEDICATION [None]
